FAERS Safety Report 23126723 (Version 2)
Quarter: 2023Q4

REPORT INFORMATION
  Report Type: Spontaneous
  Country: US (occurrence: US)
  Receive Date: 20231030
  Receipt Date: 20231120
  Transmission Date: 20240110
  Serious: Yes (Hospitalization)
  Sender: FDA-Public Use
  Company Number: US-PFIZER INC-202300347335

PATIENT
  Age: 8 Year
  Sex: Female

DRUGS (5)
  1. OXBRYTA [Suspect]
     Active Substance: VOXELOTOR
     Indication: Sickle cell anaemia with crisis
     Dosage: 300 MG, 3X/DAY (3 TABLETS ONCE DAILY)
     Route: 048
     Dates: start: 20221202
  2. OXBRYTA [Suspect]
     Active Substance: VOXELOTOR
     Dosage: 900 MG, 1X/DAY
     Route: 048
  3. HYDROXYUREA [Concomitant]
     Active Substance: HYDROXYUREA
     Dosage: 500 MG
  4. HYDROXYUREA [Concomitant]
     Active Substance: HYDROXYUREA
     Dosage: 600 MG
  5. FOLIC ACID [Concomitant]
     Active Substance: FOLIC ACID
     Dosage: UNK

REACTIONS (2)
  - Influenza [Recovered/Resolved]
  - Bacterial infection [Unknown]
